FAERS Safety Report 20965260 (Version 1)
Quarter: 2022Q2

REPORT INFORMATION
  Report Type: Spontaneous
  Country: CN (occurrence: None)
  Receive Date: 20220616
  Receipt Date: 20220616
  Transmission Date: 20220720
  Serious: Yes (Hospitalization)
  Sender: FDA-Public Use
  Company Number: CN-ROCHE-3116116

PATIENT
  Age: 54 Year
  Sex: Female

DRUGS (3)
  1. AVASTIN [Suspect]
     Active Substance: BEVACIZUMAB
     Indication: Ovarian epithelial cancer
     Dosage: ONCE PER DAY
     Route: 041
     Dates: start: 20220511
  2. TOPOTECAN HYDROCHLORIDE [Suspect]
     Active Substance: TOPOTECAN HYDROCHLORIDE
     Indication: Ovarian epithelial cancer
     Dosage: ONCE PER DAY
     Route: 048
     Dates: start: 20220511
  3. CISPLATIN [Suspect]
     Active Substance: CISPLATIN
     Indication: Ovarian epithelial cancer
     Dosage: ONCE PER DAY
     Route: 041
     Dates: start: 20220511

REACTIONS (1)
  - Myelosuppression [Recovering/Resolving]

NARRATIVE: CASE EVENT DATE: 20220526
